FAERS Safety Report 8222898-1 (Version None)
Quarter: 2012Q1

REPORT INFORMATION
  Report Type: 
  Country: None (occurrence: None)
  Receive Date: 20120320
  Receipt Date: 20120305
  Transmission Date: 20120608
  Serious: Yes (Other)
  Sender: FDA-Public Use
  Company Number: CHPA2012US002942

PATIENT
  Age: 46 Year
  Sex: Male

DRUGS (1)
  1. EXCEDRIN EXTRA STRENGTH TABLETS [Suspect]
     Dosage: UNK , UNK
     Route: 048
     Dates: end: 20110924

REACTIONS (4)
  - ASTHMA [None]
  - SWELLING [None]
  - MALAISE [None]
  - HYPERSENSITIVITY [None]
